FAERS Safety Report 5071868-3 (Version None)
Quarter: 2006Q3

REPORT INFORMATION
  Report Type: 
  Country: None (occurrence: None)
  Receive Date: 20060804
  Receipt Date: 20060616
  Transmission Date: 20061208
  Serious: Yes (Death, Hospitalization)
  Sender: FDA-Public Use
  Company Number: US-BRISTOL-MYERS SQUIBB COMPANY-13415740

PATIENT
  Age: 85 Year
  Sex: Female

DRUGS (1)
  1. ENKAID [Suspect]
     Indication: VENTRICULAR TACHYCARDIA
     Route: 048
     Dates: start: 19841026, end: 20060421

REACTIONS (1)
  - LUNG CANCER METASTATIC [None]
